FAERS Safety Report 8970358 (Version 1)
Quarter: 2012Q4

REPORT INFORMATION
  Report Type: 
  Country: US (occurrence: US)
  Receive Date: 20121218
  Receipt Date: 20121218
  Transmission Date: 20130627
  Serious: Yes (Hospitalization)
  Sender: FDA-Public Use
  Company Number: US-BRISTOL-MYERS SQUIBB COMPANY-17048943

PATIENT
  Age: 37 Year
  Sex: Female

DRUGS (3)
  1. ABILIFY [Suspect]
     Indication: BIPOLAR DISORDER
  2. LAMICTAL [Suspect]
     Indication: BIPOLAR DISORDER
     Dates: start: 201208
  3. TOPAMAX [Suspect]

REACTIONS (3)
  - Adverse event [Unknown]
  - Impaired gastric emptying [Unknown]
  - Migraine [Unknown]
